FAERS Safety Report 7510168-6 (Version None)
Quarter: 2011Q2

REPORT INFORMATION
  Report Type: 
  Country: None (occurrence: None)
  Receive Date: 20110527
  Receipt Date: 20110516
  Transmission Date: 20111010
  Serious: Yes (Hospitalization)
  Sender: FDA-Public Use
  Company Number: US-UCBSA-032190

PATIENT
  Sex: Female
  Weight: 53.3 kg

DRUGS (6)
  1. CIMZIA [Suspect]
     Route: 058
     Dates: start: 20101001
  2. CIMZIA [Suspect]
     Indication: CROHN'S DISEASE
     Route: 058
     Dates: start: 20100131
  3. VITAMIN D [Concomitant]
     Indication: OSTEOPENIA
     Dosage: 50,000 UNITS WEEKLY
     Route: 048
  4. PREDNISONE [Concomitant]
     Indication: CROHN'S DISEASE
     Route: 048
  5. PENTASA [Concomitant]
     Indication: CROHN'S DISEASE
     Route: 048
  6. NEXIUM [Concomitant]
     Indication: GASTROOESOPHAGEAL REFLUX DISEASE
     Route: 048

REACTIONS (3)
  - ORAL INFECTION [None]
  - NEPHROLITHIASIS [None]
  - HYDRONEPHROSIS [None]
